FAERS Safety Report 4848833-1 (Version None)
Quarter: 2005Q4

REPORT INFORMATION
  Report Type: 
  Country: None (occurrence: None)
  Receive Date: 20051115
  Receipt Date: 20050718
  Transmission Date: 20060501
  Serious: Yes (Other)
  Sender: FDA-Public Use
  Company Number: 402546

PATIENT
  Age: 50 Year
  Sex: Female

DRUGS (2)
  1. PEGASYS [Suspect]
     Indication: HEPATITIS C VIRUS
     Dosage: 180 MCG  1 PER WEEK  SUBCUTANEOUS
     Route: 058
     Dates: start: 20050225
  2. COPEGUS [Suspect]
     Indication: HEPATITIS C VIRUS
     Dosage: ORAL
     Route: 048
     Dates: start: 20050225, end: 20050418

REACTIONS (10)
  - ALOPECIA [None]
  - ANAEMIA [None]
  - DEPRESSION [None]
  - DIZZINESS [None]
  - FATIGUE [None]
  - HOT FLUSH [None]
  - HYPOTRICHOSIS [None]
  - INSOMNIA [None]
  - NAUSEA [None]
  - NEUTROPENIA [None]
